FAERS Safety Report 7954999-7 (Version None)
Quarter: 2011Q4

REPORT INFORMATION
  Report Type: 
  Country: None (occurrence: None)
  Receive Date: 20111202
  Receipt Date: 20111121
  Transmission Date: 20120403
  Serious: Yes (Hospitalization)
  Sender: FDA-Public Use
  Company Number: PHHO2011NL019520

PATIENT
  Sex: Female
  Weight: 65 kg

DRUGS (5)
  1. MYFORTIC [Suspect]
     Indication: RENAL TRANSPLANT
     Dosage: 300 MG, BID
     Dates: start: 20110927
  2. FUROSEMIDE [Concomitant]
     Dosage: 250 MG, UNK
     Dates: start: 20110927
  3. PROGRAF [Suspect]
     Indication: RENAL TRANSPLANT
     Dosage: 6 MG, BID
     Dates: start: 20110927, end: 20110930
  4. PREDNISONE TAB [Suspect]
     Indication: RENAL TRANSPLANT
     Dosage: 10 MG, UNK
     Dates: start: 20110927
  5. NEXIUM [Concomitant]
     Indication: PROPHYLAXIS
     Dosage: UNK
     Dates: start: 20110927

REACTIONS (1)
  - KIDNEY TRANSPLANT REJECTION [None]
